FAERS Safety Report 6621936-7 (Version None)
Quarter: 2010Q1

REPORT INFORMATION
  Report Type: 
  Country: None (occurrence: None)
  Receive Date: 20100223
  Receipt Date: 20091231
  Transmission Date: 20100710
  Serious: No
  Sender: FDA-Public Use
  Company Number: 003796

PATIENT
  Sex: Male

DRUGS (2)
  1. CIMZIA [Suspect]
     Dosage: (400 MG SUBCUTANEOUS)
     Route: 058
     Dates: start: 20081118
  2. CIMZIA [Suspect]

REACTIONS (3)
  - DIARRHOEA [None]
  - RASH [None]
  - STRESS [None]
